FAERS Safety Report 24432965 (Version 1)
Quarter: 2024Q4

REPORT INFORMATION
  Report Type: Report from Study
  Country: DE (occurrence: DE)
  Receive Date: 20241014
  Receipt Date: 20241014
  Transmission Date: 20250115
  Serious: Yes (Hospitalization, Other)
  Sender: ISTITUTO BICHIMICO ITALIANO GIOVANNI LORENZINI (IBIGEN)
  Company Number: DE-BRISTOL-MYERS SQUIBB COMPANY-BMS-2019-095625

PATIENT
  Age: 70 Year
  Sex: Male
  Weight: 78 kg

DRUGS (18)
  1. OPDIVO [Suspect]
     Active Substance: NIVOLUMAB
     Indication: Malignant melanoma
     Route: 040
     Dates: start: 20190703, end: 20190703
  2. AMPICILLIN SODIUM\SULBACTAM SODIUM [Suspect]
     Active Substance: AMPICILLIN SODIUM\SULBACTAM SODIUM
     Indication: Diarrhoea
  3. BUTYLSCOPOLAMINIUMBROMID [Concomitant]
     Indication: Abdominal pain
  4. BISOPROLOL [Concomitant]
     Active Substance: BISOPROLOL\BISOPROLOL FUMARATE
     Indication: Sinus tachycardia
     Dosage: ()
     Route: 048
     Dates: start: 20190715, end: 20210228
  5. RIVAROXABAN [Concomitant]
     Active Substance: RIVAROXABAN
  6. SODIUM CHLORIDE [Concomitant]
     Active Substance: SODIUM CHLORIDE
  7. POTASSIUM CHLORIDE [Concomitant]
     Active Substance: POTASSIUM CHLORIDE
     Dosage: ACTIVE SUBSTANCE: KALIUMCHLORID, DAILY DOSE: 160 UNBEKANNT, ?APPLICATION ROUTE: PER ORAL, PHARMAC...
     Route: 048
     Dates: start: 20190715, end: 20190729
  8. POTASSIUM CHLORIDE [Concomitant]
     Active Substance: POTASSIUM CHLORIDE
     Dosage: DAILY DOSE: 20 UNBEKANNT, APPLICATION ROUTE: INTRAVENOUS, PHARMACEUTICAL FORM: INFUSION,PERIOD: ?...
     Route: 040
     Dates: start: 20190715, end: 20190729
  9. YERVOY [Suspect]
     Active Substance: IPILIMUMAB
     Indication: Malignant melanoma
     Dates: start: 20190703, end: 20190703
  10. METOCLOPRAMIDE HYDROCHLORIDE [Concomitant]
     Active Substance: METOCLOPRAMIDE HYDROCHLORIDE
     Indication: Vomiting
     Dosage: DOSE: 30 MG/M?? ()
     Route: 042
     Dates: start: 20190715, end: 20210228
  11. Prednicarbonate [Concomitant]
     Indication: Autoimmune disorder
     Dosage: ()
     Route: 003
     Dates: start: 20190730, end: 20190815
  12. GANCICLOVIR [Concomitant]
     Active Substance: GANCICLOVIR
     Indication: Cytomegalovirus infection
     Route: 040
     Dates: start: 20190729, end: 20190815
  13. ENOXAPARIN SODIUM [Concomitant]
     Active Substance: ENOXAPARIN SODIUM
     Indication: Sinus tachycardia
     Route: 058
     Dates: start: 20190715, end: 20190816
  14. Magnesium ion [Concomitant]
     Indication: Sinus tachycardia
     Route: 048
     Dates: start: 20190717, end: 20210228
  15. D-Gluconsaeure [Concomitant]
     Indication: Hypokalaemia
     Dosage: ()
     Route: 042
     Dates: start: 20190715, end: 20190717
  16. METHYLPREDNISOLONE [Concomitant]
     Active Substance: METHYLPREDNISOLONE
     Indication: Autoimmune disorder
  17. pantoprazole sodium-1,5-water [Concomitant]
  18. Magnesiumhydrogen- L-glutamat-4-Wasser [Concomitant]
     Indication: Vomiting
     Route: 048
     Dates: start: 20190717, end: 20210228

REACTIONS (11)
  - Hypokalaemia [Recovered/Resolved]
  - Atrial fibrillation [Recovering/Resolving]
  - Vomiting [Recovered/Resolved]
  - Cytomegalovirus infection [Unknown]
  - Acute kidney injury [Recovered/Resolved]
  - Autoimmune disorder [Recovered/Resolved]
  - Diarrhoea [Recovered/Resolved]
  - Abdominal pain [Recovered/Resolved]
  - Drug eruption [Recovered/Resolved]
  - Sinus tachycardia [Recovered/Resolved]
  - Vomiting [Recovered/Resolved]

NARRATIVE: CASE EVENT DATE: 20190715
